FAERS Safety Report 5431106-6 (Version None)
Quarter: 2007Q3

REPORT INFORMATION
  Report Type: 
  Country: None (occurrence: None)
  Receive Date: 20070830
  Receipt Date: 20070215
  Transmission Date: 20080115
  Serious: No
  Sender: FDA-Public Use
  Company Number: A0639736A

PATIENT
  Age: 30 Year
  Sex: Female

DRUGS (4)
  1. WELLBUTRIN XL [Suspect]
     Indication: DEPRESSION
     Dosage: 150MG TWICE PER DAY
     Route: 048
     Dates: start: 20070130
  2. CLARITIN [Concomitant]
  3. TOPAMAX [Concomitant]
  4. NUVARING [Concomitant]

REACTIONS (2)
  - RASH [None]
  - URTICARIA [None]
